FAERS Safety Report 7819874-7 (Version None)
Quarter: 2011Q4

REPORT INFORMATION
  Report Type: 
  Country: None (occurrence: None)
  Receive Date: 20111018
  Receipt Date: 20101018
  Transmission Date: 20120403
  Serious: No
  Sender: FDA-Public Use
  Company Number: US-ASTRAZENECA-2010SE49486

PATIENT
  Age: 739 Month
  Sex: Female
  Weight: 64.9 kg

DRUGS (2)
  1. SYMBICORT [Suspect]
     Indication: BRONCHITIS
     Dosage: 160 BID
     Route: 055
     Dates: start: 20080101
  2. NEXIUM [Suspect]
     Indication: GASTROOESOPHAGEAL REFLUX DISEASE
     Dosage: 40 DAILY
     Route: 048
     Dates: start: 19990101

REACTIONS (3)
  - CHEST PAIN [None]
  - MUSCULOSKELETAL PAIN [None]
  - PAIN IN EXTREMITY [None]
